FAERS Safety Report 9948273 (Version 2)
Quarter: 2014Q1

REPORT INFORMATION
  Report Type: Report from Study
  Country: US (occurrence: US)
  Receive Date: 20140303
  Receipt Date: 20140303
  Transmission Date: 20141002
  Serious: Yes (Hospitalization)
  Sender: FDA-Public Use
  Company Number: US-ABBVIE-13P-163-1058315-00

PATIENT
  Age: 25 Year
  Sex: Female
  Weight: 44.95 kg

DRUGS (5)
  1. HUMIRA PEN [Suspect]
     Indication: CROHN^S DISEASE
     Dosage: LOADING DOSE
     Dates: start: 201210, end: 201210
  2. HUMIRA PEN [Suspect]
     Dosage: LOADING DOSE, 2 WEEKS AFTER INITIAL DOSE
     Dates: start: 201210, end: 201210
  3. HUMIRA PEN [Suspect]
     Dates: start: 201211
  4. XANAX [Concomitant]
     Indication: ANXIETY
  5. OXYCODONE [Concomitant]
     Indication: PAIN

REACTIONS (5)
  - Clostridium difficile infection [Not Recovered/Not Resolved]
  - Pain [Not Recovered/Not Resolved]
  - Abdominal pain upper [Not Recovered/Not Resolved]
  - Asthenia [Not Recovered/Not Resolved]
  - Incorrect dose administered [Recovered/Resolved]
